FAERS Safety Report 6119904-7 (Version None)
Quarter: 2009Q1

REPORT INFORMATION
  Report Type: 
  Country: None (occurrence: None)
  Receive Date: 20090316
  Receipt Date: 20090304
  Transmission Date: 20090719
  Serious: Yes (Hospitalization)
  Sender: FDA-Public Use
  Company Number: FR-SANOFI-SYNTHELABO-A02200900589

PATIENT
  Sex: Male
  Weight: 17 kg

DRUGS (4)
  1. SECTRAL [Interacting]
     Indication: DRUG USE FOR UNKNOWN INDICATION
     Dosage: UNK
     Route: 050
  2. KAYEXALATE [Suspect]
     Indication: DRUG USE FOR UNKNOWN INDICATION
     Route: 048
  3. UN-ALPHA [Interacting]
     Indication: DRUG USE FOR UNKNOWN INDICATION
     Route: 048
  4. DEPAKENE [Interacting]
     Indication: GRAND MAL CONVULSION
     Route: 048
     Dates: start: 20081101

REACTIONS (3)
  - CONVULSION [None]
  - DRUG INTERACTION [None]
  - DRUG LEVEL DECREASED [None]
